FAERS Safety Report 7466370-5 (Version None)
Quarter: 2011Q2

REPORT INFORMATION
  Report Type: 
  Country: None (occurrence: None)
  Receive Date: 20110509
  Receipt Date: 20100806
  Transmission Date: 20111010
  Serious: No
  Sender: FDA-Public Use
  Company Number: US-ALEXION-A201000948

PATIENT
  Sex: Female

DRUGS (6)
  1. PANTOPRAZOLE [Concomitant]
     Indication: REFLUX OESOPHAGITIS
     Dosage: 40 MG, QD
     Route: 048
     Dates: start: 20090201
  2. SOLIRIS [Suspect]
     Indication: PAROXYSMAL NOCTURNAL HAEMOGLOBINURIA
     Dosage: 900 MG, Q2W
     Route: 042
     Dates: start: 20070521, end: 20100101
  3. SOLIRIS [Suspect]
     Dosage: UNK,12D
     Route: 042
     Dates: start: 20100530
  4. EXJADE [Concomitant]
     Dosage: 1500 MG, QD (HS)
     Route: 048
     Dates: start: 20100501
  5. ESCITALOPRAM [Concomitant]
     Indication: DEPRESSION
     Dosage: 20 MG, QD
     Route: 048
     Dates: start: 20100418
  6. FOLIC ACID [Concomitant]
     Dosage: 1 MG, QD
     Route: 048
     Dates: start: 19950101

REACTIONS (1)
  - HAEMOGLOBINURIA [None]
